FAERS Safety Report 25016525 (Version 1)
Quarter: 2025Q1

REPORT INFORMATION
  Report Type: Other
  Country: CN (occurrence: CN)
  Receive Date: 20250227
  Receipt Date: 20250227
  Transmission Date: 20250409
  Serious: Yes (Hospitalization, Other)
  Sender: ANI
  Company Number: CN-ANIPHARMA-015713

PATIENT
  Age: 36 Year
  Sex: Female

DRUGS (9)
  1. CYCLOPHOSPHAMIDE [Suspect]
     Active Substance: CYCLOPHOSPHAMIDE
     Indication: Triple negative breast cancer
  2. DOXORUBICIN [Concomitant]
     Active Substance: DOXORUBICIN
     Indication: Triple negative breast cancer
  3. MOXIFLOXACIN [Concomitant]
     Active Substance: MOXIFLOXACIN
     Indication: Evidence based treatment
  4. ACETYLCYSTEINE [Concomitant]
     Active Substance: ACETYLCYSTEINE
     Indication: Productive cough
  5. AMBROXOL [Concomitant]
     Active Substance: AMBROXOL
     Indication: Productive cough
  6. TERBUTALINE [Concomitant]
     Active Substance: TERBUTALINE
     Indication: Bronchospasm
  7. METHYLPREDNISOLONE SODIUM SUCCINATE [Concomitant]
     Active Substance: METHYLPREDNISOLONE SODIUM SUCCINATE
     Indication: Antiinflammatory therapy
  8. MISOPROSTOL [Concomitant]
     Active Substance: MISOPROSTOL
     Indication: Prophylaxis
  9. METHYLPREDNISOLONE SODIUM SUCCINATE [Concomitant]
     Active Substance: METHYLPREDNISOLONE SODIUM SUCCINATE
     Indication: Antiinflammatory therapy

REACTIONS (2)
  - Lymphopenia [Recovering/Resolving]
  - Pneumocystis jirovecii infection [Unknown]
